FAERS Safety Report 8154003-4 (Version None)
Quarter: 2012Q1

REPORT INFORMATION
  Report Type: 
  Country: None (occurrence: None)
  Receive Date: 20120221
  Receipt Date: 20120221
  Transmission Date: 20120608
  Serious: No
  Sender: FDA-Public Use
  Company Number: None

PATIENT
  Age: 56 Year
  Sex: Female
  Weight: 63.502 kg

DRUGS (1)
  1. PATADAY [Suspect]
     Indication: EYE ALLERGY
     Dosage: 1 DROP
     Route: 047
     Dates: start: 20120212, end: 20120217

REACTIONS (5)
  - DYSPHAGIA [None]
  - COUGH [None]
  - OROPHARYNGEAL PAIN [None]
  - EYELID MARGIN CRUSTING [None]
  - DYSPNOEA [None]
